FAERS Safety Report 8518182-9 (Version None)
Quarter: 2012Q3

REPORT INFORMATION
  Report Type: 
  Country: None (occurrence: None)
  Receive Date: 20120718
  Receipt Date: 20111020
  Transmission Date: 20120928
  Serious: No
  Sender: FDA-Public Use
  Company Number: US-BRISTOL-MYERS SQUIBB COMPANY-16180648

PATIENT
  Age: 78 Year
  Sex: Female

DRUGS (1)
  1. COUMADIN [Suspect]

REACTIONS (5)
  - PRURITUS [None]
  - FLUSHING [None]
  - THYROID DISORDER [None]
  - TACHYCARDIA [None]
  - GINGIVAL BLEEDING [None]
